FAERS Safety Report 23747916 (Version 2)
Quarter: 2024Q2

REPORT INFORMATION
  Report Type: Spontaneous
  Country: US (occurrence: US)
  Receive Date: 20240416
  Receipt Date: 20240517
  Transmission Date: 20240715
  Serious: No
  Sender: FDA-Public Use
  Company Number: US-PFIZER INC-PV202400048835

PATIENT
  Age: 9 Year
  Sex: Female
  Weight: 52.6 kg

DRUGS (4)
  1. GENOTROPIN [Suspect]
     Active Substance: SOMATROPIN
     Indication: Growth hormone deficiency
     Dosage: 1.2 MG, DAILY
     Route: 058
  2. GENOTROPIN [Suspect]
     Active Substance: SOMATROPIN
     Indication: Precocious puberty
  3. GENOTROPIN [Suspect]
     Active Substance: SOMATROPIN
     Indication: Dwarfism
  4. GENOTROPIN [Suspect]
     Active Substance: SOMATROPIN
     Indication: Hyperpituitarism

REACTIONS (9)
  - Blood glucose fluctuation [Unknown]
  - Blood calcium increased [Unknown]
  - Red blood cell count increased [Unknown]
  - Blood alkaline phosphatase decreased [Unknown]
  - Blood bilirubin decreased [Unknown]
  - Basophil count increased [Unknown]
  - Haemoglobin increased [Unknown]
  - Haematocrit increased [Unknown]
  - Mean platelet volume decreased [Unknown]

NARRATIVE: CASE EVENT DATE: 20230711
